FAERS Safety Report 19439579 (Version 1)
Quarter: 2021Q2

REPORT INFORMATION
  Report Type: Report from Study
  Country: None (occurrence: US)
  Receive Date: 20210618
  Receipt Date: 20210618
  Transmission Date: 20210717
  Serious: Yes (Other)
  Sender: FDA-Public Use
  Company Number: US-ABBVIE-21K-163-3950510-00

PATIENT
  Age: 44 Year
  Sex: Female

DRUGS (1)
  1. HUMIRA [Suspect]
     Active Substance: ADALIMUMAB
     Indication: ANKYLOSING SPONDYLITIS
     Dosage: CF PEN
     Route: 058
     Dates: start: 20210609

REACTIONS (6)
  - Nausea [Not Recovered/Not Resolved]
  - Joint injury [Unknown]
  - Vascular rupture [Unknown]
  - Abdominal discomfort [Not Recovered/Not Resolved]
  - Contusion [Recovering/Resolving]
  - Decreased appetite [Not Recovered/Not Resolved]

NARRATIVE: CASE EVENT DATE: 202106
